FAERS Safety Report 11808378 (Version 1)
Quarter: 2015Q4

REPORT INFORMATION
  Report Type: Spontaneous
  Country: US (occurrence: US)
  Receive Date: 20151207
  Receipt Date: 20151207
  Transmission Date: 20160305
  Serious: No
  Sender: FDA-Public Use
  Company Number: US-ROCHE-1642353

PATIENT
  Sex: Female

DRUGS (3)
  1. VALIUM [Suspect]
     Active Substance: DIAZEPAM
     Indication: MUSCLE RELAXANT THERAPY
  2. VALIUM [Suspect]
     Active Substance: DIAZEPAM
     Indication: NEUROPATHY PERIPHERAL
  3. VALIUM [Suspect]
     Active Substance: DIAZEPAM
     Indication: PANIC ATTACK
     Route: 048

REACTIONS (2)
  - Diabetes mellitus [Not Recovered/Not Resolved]
  - Hepatic cirrhosis [Not Recovered/Not Resolved]
